FAERS Safety Report 14557051 (Version 1)
Quarter: 2018Q1

REPORT INFORMATION
  Report Type: Spontaneous
  Country: US (occurrence: US)
  Receive Date: 20180221
  Receipt Date: 20180221
  Transmission Date: 20180509
  Serious: No
  Sender: FDA-Public Use
  Company Number: US-ENDO PHARMACEUTICALS INC-2017-007816

PATIENT
  Sex: Male

DRUGS (3)
  1. NASCOBAL [Suspect]
     Active Substance: CYANOCOBALAMIN
     Indication: VITAMIN B12 DECREASED
     Dosage: UNK UNK, UNKNOWN
     Route: 045
     Dates: start: 201209
  2. NASCOBAL [Suspect]
     Active Substance: CYANOCOBALAMIN
     Dosage: UNK DOUBLED DOSE, UNKNOWN
     Route: 045
     Dates: start: 201702, end: 2017
  3. VYTORIN [Concomitant]
     Active Substance: EZETIMIBE\SIMVASTATIN
     Indication: PRODUCT USED FOR UNKNOWN INDICATION
     Dosage: UNK

REACTIONS (6)
  - Drug ineffective [Unknown]
  - Underdose [Unknown]
  - Cognitive disorder [Not Recovered/Not Resolved]
  - Product quality issue [Unknown]
  - Vitamin B12 decreased [Unknown]
  - Incorrect dose administered [Unknown]

NARRATIVE: CASE EVENT DATE: 2017
